FAERS Safety Report 17967224 (Version 1)
Quarter: 2020Q3

REPORT INFORMATION
  Report Type: Spontaneous
  Country: US (occurrence: US)
  Receive Date: 20200701
  Receipt Date: 20200701
  Transmission Date: 20201103
  Serious: Yes (Hospitalization)
  Sender: FDA-Public Use
  Company Number: None

PATIENT
  Age: 35 Month
  Sex: Female
  Weight: 14.8 kg

DRUGS (3)
  1. VINBLASTINE SULFATE. [Suspect]
     Active Substance: VINBLASTINE SULFATE
     Dates: end: 20200626
  2. CYCLOPHOSPHAMIDE (26271) [Suspect]
     Active Substance: CYCLOPHOSPHAMIDE
     Dates: end: 20200626
  3. DACTINOMYCIN [Suspect]
     Active Substance: DACTINOMYCIN
     Dates: end: 20200626

REACTIONS (3)
  - Haemoperitoneum [None]
  - Anaemia [None]
  - Tumour haemorrhage [None]

NARRATIVE: CASE EVENT DATE: 20200629
